FAERS Safety Report 11808419 (Version 1)
Quarter: 2015Q4

REPORT INFORMATION
  Report Type: Spontaneous
  Country: US (occurrence: US)
  Receive Date: 20151207
  Receipt Date: 20151207
  Transmission Date: 20160305
  Serious: No
  Sender: FDA-Public Use
  Company Number: US-ROCHE-1451431

PATIENT
  Sex: Male

DRUGS (1)
  1. LUCENTIS [Suspect]
     Active Substance: RANIBIZUMAB
     Indication: MACULAR DEGENERATION
     Dosage: PATIENT RECIEVED THREE SHOTS, LAST DOSE RECIEVED ON 15/AUG/2014
     Route: 065

REACTIONS (2)
  - Anastomotic stenosis [Unknown]
  - Choking [Unknown]
